FAERS Safety Report 25040332 (Version 2)
Quarter: 2025Q1

REPORT INFORMATION
  Report Type: Spontaneous
  Country: GB (occurrence: GB)
  Receive Date: 20250305
  Receipt Date: 20250325
  Transmission Date: 20250408
  Serious: Yes (Other)
  Sender: MSN LABORATORIES PRIVATE LIMITED
  Company Number: None

PATIENT

DRUGS (2)
  1. PIRFENIDONE [Suspect]
     Active Substance: PIRFENIDONE
     Indication: Product used for unknown indication
     Route: 065
     Dates: end: 20241216
  2. PIRFENIDONE [Suspect]
     Active Substance: PIRFENIDONE
     Dosage: 2 TABLETS, 3 TIMES A DAY
     Route: 065
     Dates: start: 20250123

REACTIONS (7)
  - Ageusia [Not Recovered/Not Resolved]
  - Myalgia [Not Recovered/Not Resolved]
  - Abdominal pain upper [Recovered/Resolved]
  - Anosmia [Not Recovered/Not Resolved]
  - Taste disorder [Unknown]
  - Impaired quality of life [Unknown]
  - Nausea [Not Recovered/Not Resolved]
